FAERS Safety Report 4354094-2 (Version None)
Quarter: 2004Q2

REPORT INFORMATION
  Report Type: 
  Country: None (occurrence: None)
  Receive Date: 20040505
  Receipt Date: 20040505
  Transmission Date: 20050107
  Serious: No
  Sender: FDA-Public Use
  Company Number: None

PATIENT
  Sex: Female

DRUGS (1)
  1. TRIMOX [Suspect]
     Indication: PHARYNGITIS
     Dosage: 500 MG BID
     Dates: start: 20040213, end: 20040220

REACTIONS (1)
  - HYPERSENSITIVITY [None]
